FAERS Safety Report 23116349 (Version 1)
Quarter: 2023Q4

REPORT INFORMATION
  Report Type: Spontaneous
  Country: ES (occurrence: ES)
  Receive Date: 20231027
  Receipt Date: 20231027
  Transmission Date: 20240110
  Serious: Yes (Hospitalization, Other)
  Sender: FDA-Public Use
  Company Number: None

PATIENT
  Age: 71 Year
  Sex: Female

DRUGS (4)
  1. PACLITAXEL [Suspect]
     Active Substance: PACLITAXEL
     Indication: Invasive ductal breast carcinoma
     Dosage: 114 MG THE 2 FIRST DOSES (D1, D8), 86 MG 3RD DOSE (D15)
     Route: 042
     Dates: start: 20230710, end: 20230725
  2. CARBOPLATIN [Suspect]
     Active Substance: CARBOPLATIN
     Indication: Invasive ductal breast carcinoma
     Dosage: 400 MG UNIQUE DOSE
     Route: 042
     Dates: start: 20230710, end: 20230710
  3. ATORVASTATIN [Suspect]
     Active Substance: ATORVASTATIN
     Indication: Dyslipidaemia
     Dosage: 40 MG, 1X/DAY (1 PER DAY)
     Route: 048
     Dates: start: 20230710, end: 20230801
  4. OMEPRAZOLE [Suspect]
     Active Substance: OMEPRAZOLE
     Indication: Prophylaxis
     Dosage: 20 MG, 1X/DAY (1 PER DAY)
     Route: 048
     Dates: start: 20230710, end: 20230801

REACTIONS (2)
  - Mixed liver injury [Recovered/Resolved]
  - Off label use [Unknown]

NARRATIVE: CASE EVENT DATE: 20230710
